FAERS Safety Report 8270418-8 (Version None)
Quarter: 2012Q2

REPORT INFORMATION
  Report Type: 
  Country: None (occurrence: None)
  Receive Date: 20120410
  Receipt Date: 20120329
  Transmission Date: 20120825
  Serious: Yes (Other)
  Sender: FDA-Public Use
  Company Number: PHHY2011JP86487

PATIENT
  Age: 50 Year
  Sex: Male

DRUGS (4)
  1. SANDIMMUNE [Suspect]
     Indication: ERYTHRODERMIC PSORIASIS
     Dosage: UNK UKN, UNK
     Route: 048
     Dates: start: 19940101
  2. NEORAL [Suspect]
     Indication: ERYTHRODERMIC PSORIASIS
  3. REMICADE [Suspect]
     Indication: ERYTHRODERMIC PSORIASIS
     Dosage: UNK UKN, UNK
     Dates: start: 20080801, end: 20110501
  4. NEORAL [Suspect]
     Indication: PSORIASIS
     Dosage: UNK UKN, UNK
     Route: 048
     Dates: start: 19940101, end: 20080801

REACTIONS (3)
  - INTERSTITIAL LUNG DISEASE [None]
  - RENAL IMPAIRMENT [None]
  - CELL MARKER INCREASED [None]
